FAERS Safety Report 8372363-6 (Version None)
Quarter: 2012Q2

REPORT INFORMATION
  Report Type: 
  Country: None (occurrence: None)
  Receive Date: 20120521
  Receipt Date: 20120515
  Transmission Date: 20120825
  Serious: No
  Sender: FDA-Public Use
  Company Number: US-PFIZER INC-2012118139

PATIENT
  Sex: Female

DRUGS (13)
  1. CELEBREX [Suspect]
     Dosage: UNK
  2. GEMFIBROZIL [Suspect]
     Dosage: UNK
  3. MORPHINE SULFATE [Suspect]
     Dosage: UNK
  4. CODEINE SULFATE [Suspect]
     Dosage: UNK
  5. MAGNESIUM [Suspect]
     Dosage: UNK
  6. ENALAPRIL MALEATE [Suspect]
     Dosage: UNK
  7. CECLOR [Suspect]
     Dosage: UNK
  8. STADOL [Suspect]
     Dosage: UNK
  9. DEMEROL [Suspect]
     Dosage: UNK
  10. CARAFATE [Suspect]
     Dosage: UNK
  11. ASPIRIN [Suspect]
     Dosage: UNK
  12. PERCODAN [Suspect]
     Dosage: UNK
  13. VALIUM [Suspect]
     Dosage: UNK

REACTIONS (1)
  - DRUG HYPERSENSITIVITY [None]
